FAERS Safety Report 9134594 (Version 1)
Quarter: 2013Q1

REPORT INFORMATION
  Report Type: Spontaneous
  Country: US (occurrence: US)
  Receive Date: 20130304
  Receipt Date: 20130304
  Transmission Date: 20140127
  Serious: Yes (Other)
  Sender: FDA-Public Use
  Company Number: PHEH2013US004938

PATIENT
  Sex: Male

DRUGS (2)
  1. VALSARTAN + HCT [Suspect]
     Dosage: UNK UKN, UNK
  2. THYROID [Concomitant]

REACTIONS (5)
  - Diabetes mellitus [Unknown]
  - Balance disorder [Unknown]
  - Somnolence [Unknown]
  - Asthenia [Unknown]
  - Dizziness [Unknown]
